FAERS Safety Report 8360767-7 (Version None)
Quarter: 2012Q2

REPORT INFORMATION
  Report Type: 
  Country: None (occurrence: None)
  Receive Date: 20120515
  Receipt Date: 20120508
  Transmission Date: 20120825
  Serious: Yes (Hospitalization, Other)
  Sender: FDA-Public Use
  Company Number: US-AMGEN-USASP2011001476

PATIENT
  Age: 35 Year
  Sex: Female

DRUGS (4)
  1. ENBREL [Suspect]
     Indication: RHEUMATOID ARTHRITIS
     Dosage: UNK
     Dates: end: 20120406
  2. TREXALL [Concomitant]
     Dosage: 1 MG, QWK
     Dates: start: 20080817
  3. ENBREL [Suspect]
     Dosage: 50 MG, QWK
     Dates: start: 20080725, end: 20101222
  4. TREXALL [Concomitant]
     Dosage: 25 MG, QWK
     Dates: start: 20070101

REACTIONS (37)
  - FIBROMYALGIA [None]
  - GASTRITIS [None]
  - MENSTRUAL DISORDER [None]
  - FEELING HOT [None]
  - DISORIENTATION [None]
  - NAUSEA [None]
  - ERYTHEMA [None]
  - NASAL CONGESTION [None]
  - INSOMNIA [None]
  - HEART RATE INCREASED [None]
  - RASH [None]
  - EPSTEIN-BARR VIRUS INFECTION [None]
  - SLEEP APNOEA SYNDROME [None]
  - POLYP [None]
  - CYTOMEGALOVIRUS INFECTION [None]
  - INJECTION SITE PAIN [None]
  - DEVICE DIFFICULT TO USE [None]
  - SKIN EXFOLIATION [None]
  - CATAPLEXY [None]
  - ABASIA [None]
  - MUSCULOSKELETAL STIFFNESS [None]
  - RHEUMATOID ARTHRITIS [None]
  - BEDRIDDEN [None]
  - NODULE [None]
  - VIRAL INFECTION [None]
  - RASH PRURITIC [None]
  - DIARRHOEA [None]
  - ASTHENIA [None]
  - DYSGEUSIA [None]
  - FATIGUE [None]
  - WEIGHT DECREASED [None]
  - SPUTUM DISCOLOURED [None]
  - NARCOLEPSY [None]
  - SWELLING [None]
  - ENDOMETRIOSIS [None]
  - WHITE BLOOD CELL COUNT DECREASED [None]
  - ANAEMIA [None]
